FAERS Safety Report 7342762-X (Version None)
Quarter: 2011Q1

REPORT INFORMATION
  Report Type: 
  Country: None (occurrence: None)
  Receive Date: 20110310
  Receipt Date: 20110224
  Transmission Date: 20110831
  Serious: Yes (Hospitalization)
  Sender: FDA-Public Use
  Company Number: JP-CELGENEUS-087-21880-10120755

PATIENT
  Sex: Male
  Weight: 53 kg

DRUGS (15)
  1. LENDORMIN D [Concomitant]
     Dosage: .25 MILLIGRAM
     Route: 048
     Dates: start: 20100915
  2. GASMOTIN [Concomitant]
     Dosage: 15 MILLIGRAM
     Route: 048
     Dates: start: 20100915
  3. URSO 250 [Concomitant]
     Dosage: 300 MILLIGRAM
     Route: 048
     Dates: start: 20100915
  4. POSTERISAN [Concomitant]
     Route: 061
     Dates: start: 20100915
  5. TAKEPRON [Concomitant]
     Dosage: 30 MILLIGRAM
     Route: 048
     Dates: start: 20100915
  6. ZOVIRAX [Concomitant]
     Indication: PROPHYLAXIS
     Dosage: 200 MILLIGRAM
     Route: 048
     Dates: start: 20100917, end: 20100929
  7. REVLIMID [Suspect]
     Indication: MULTIPLE MYELOMA
     Dosage: 25 MILLIGRAM
     Route: 048
     Dates: start: 20100915, end: 20100928
  8. LENADEX [Suspect]
     Indication: MULTIPLE MYELOMA
     Dosage: 40 MILLIGRAM
     Route: 048
     Dates: start: 20100916, end: 20100927
  9. BAKTAR [Concomitant]
     Indication: PROPHYLAXIS
     Dosage: 1 TABLET
     Route: 048
     Dates: start: 20100915, end: 20100929
  10. ALLOID G [Concomitant]
     Dosage: 60 MILLILITER
     Route: 048
     Dates: start: 20101001, end: 20101005
  11. CALBLOCK [Concomitant]
     Indication: RENAL FAILURE CHRONIC
     Dosage: 8 MILLIGRAM
     Route: 048
     Dates: start: 20100915
  12. ALFAROL [Concomitant]
     Indication: RENAL FAILURE CHRONIC
     Dosage: .25 MICROGRAM
     Route: 048
     Dates: start: 20100915
  13. KREMEZIN [Concomitant]
     Indication: RENAL FAILURE CHRONIC
     Dosage: 6 GRAM
     Route: 048
     Dates: start: 20100915
  14. ASPIRIN [Concomitant]
     Indication: PROPHYLAXIS
     Dosage: 100 MILLIGRAM
     Route: 048
     Dates: start: 20100915, end: 20100929
  15. NU-LOTAN [Concomitant]
     Indication: RENAL FAILURE CHRONIC
     Dosage: 50 MILLIGRAM
     Route: 048
     Dates: start: 20100915

REACTIONS (4)
  - HICCUPS [None]
  - NAUSEA [None]
  - HAEMOGLOBIN DECREASED [None]
  - LIVER FUNCTION TEST ABNORMAL [None]
